FAERS Safety Report 10154263 (Version 1)
Quarter: 2014Q2

REPORT INFORMATION
  Report Type: Spontaneous
  Country: US (occurrence: None)
  Receive Date: 20140505
  Receipt Date: 20140505
  Transmission Date: 20141212
  Serious: No
  Sender: FDA-Public Use
  Company Number: None

PATIENT
  Age: 53 Year
  Sex: Male
  Weight: 86.18 kg

DRUGS (2)
  1. MODAFINIL [Suspect]
     Indication: CIRCADIAN RHYTHM SLEEP DISORDER
     Route: 048
     Dates: start: 20140325
  2. MODAFINIL [Suspect]
     Indication: HYPOPITUITARISM
     Route: 048
     Dates: start: 20140325

REACTIONS (8)
  - Product substitution issue [None]
  - Drug effect increased [None]
  - Dyspnoea [None]
  - Exercise tolerance decreased [None]
  - Emotional disorder [None]
  - Discomfort [None]
  - Somnolence [None]
  - Drug effect variable [None]
